FAERS Safety Report 6369946-1 (Version None)
Quarter: 2009Q3

REPORT INFORMATION
  Report Type: 
  Country: None (occurrence: None)
  Receive Date: 20090923
  Receipt Date: 20090716
  Transmission Date: 20100115
  Serious: No
  Sender: FDA-Public Use
  Company Number: US-ASTRAZENECA-2006UW01547

PATIENT
  Sex: Female
  Weight: 78 kg

DRUGS (21)
  1. SEROQUEL [Suspect]
     Indication: SLEEP DISORDER
     Route: 048
     Dates: start: 20031101
  2. SEROQUEL [Suspect]
     Indication: ANXIETY
     Route: 048
     Dates: start: 20031101
  3. SEROQUEL [Suspect]
     Route: 048
  4. SEROQUEL [Suspect]
     Route: 048
  5. SEROQUEL [Suspect]
     Route: 048
  6. SEROQUEL [Suspect]
     Route: 048
  7. SEROQUEL [Suspect]
     Route: 048
  8. SEROQUEL [Suspect]
     Route: 048
  9. SEROQUEL [Suspect]
     Route: 048
  10. SEROQUEL [Suspect]
     Route: 048
  11. XANAX [Concomitant]
  12. ADVAIR HFA [Concomitant]
  13. SPIRIVA [Concomitant]
  14. LEVOXYL [Concomitant]
  15. ALBUTEROL [Concomitant]
  16. LISINOPRIL [Concomitant]
  17. NIRAVAN [Concomitant]
  18. CALCIUM WITH D [Concomitant]
  19. THERAPEUTIC M [Concomitant]
  20. IBUPROFEN [Concomitant]
  21. METAMUCIL [Concomitant]

REACTIONS (8)
  - ARRHYTHMIA [None]
  - BLOOD CHOLESTEROL INCREASED [None]
  - BLOOD TRIGLYCERIDES INCREASED [None]
  - DEPRESSION [None]
  - DRUG INEFFECTIVE [None]
  - INFLUENZA LIKE ILLNESS [None]
  - MALAISE [None]
  - WEIGHT INCREASED [None]
